FAERS Safety Report 9196451 (Version 2)
Quarter: 2013Q2

REPORT INFORMATION
  Report Type: Spontaneous
  Country: US (occurrence: US)
  Receive Date: 20130328
  Receipt Date: 20130531
  Transmission Date: 20140414
  Serious: Yes (Other)
  Sender: FDA-Public Use
  Company Number: US-PFIZER INC-2013098822

PATIENT
  Age: 43 Year
  Sex: Female

DRUGS (1)
  1. CHANTIX [Suspect]
     Dosage: STARTING PACK
     Dates: start: 20100205, end: 20100206

REACTIONS (6)
  - Nerve injury [Unknown]
  - Muscle disorder [Unknown]
  - Nervous system disorder [Unknown]
  - Neuropathy peripheral [Recovering/Resolving]
  - Pain [Unknown]
  - Asthenia [Unknown]
